FAERS Safety Report 4294002-6 (Version None)
Quarter: 2004Q1

REPORT INFORMATION
  Report Type: 
  Country: None (occurrence: None)
  Receive Date: 20040212
  Receipt Date: 20040120
  Transmission Date: 20041129
  Serious: Yes (Death)
  Sender: FDA-Public Use
  Company Number: WAES 0401USA01421

PATIENT
  Age: 47 Year
  Sex: Female

DRUGS (3)
  1. LORTAB [Concomitant]
     Dates: start: 20030903
  2. VIOXX [Suspect]
     Indication: ARTHRALGIA
     Route: 048
  3. EFFEXOR [Concomitant]

REACTIONS (2)
  - INTENTIONAL OVERDOSE [None]
  - RUPTURED CEREBRAL ANEURYSM [None]
